FAERS Safety Report 9255848 (Version 1)
Quarter: 2013Q2

REPORT INFORMATION
  Report Type: Other
  Country: IR (occurrence: IR)
  Receive Date: 20130425
  Receipt Date: 20130425
  Transmission Date: 20140414
  Serious: Yes (Life-Threatening)
  Sender: FDA-Public Use
  Company Number: IR-PURDUE-DEU-2013-0011294

PATIENT
  Age: 40 Year
  Sex: Male

DRUGS (1)
  1. NON-PMN MORPHINE SULFATE [Suspect]
     Indication: PAIN
     Dosage: 5 MG, SINGLE
     Route: 042

REACTIONS (1)
  - Uvulitis [Recovered/Resolved]
